FAERS Safety Report 4399589-0 (Version None)
Quarter: 2004Q3

REPORT INFORMATION
  Report Type: 
  Country: None (occurrence: None)
  Receive Date: 20040712
  Receipt Date: 20040629
  Transmission Date: 20050211
  Serious: Yes (Life-Threatening, Hospitalization, Disabling)
  Sender: FDA-Public Use
  Company Number: F01200401646

PATIENT
  Age: 71 Year
  Sex: Female

DRUGS (3)
  1. (OXALIPLATIN) - SOLUTION - 130 MG/M2 [Suspect]
     Indication: COLORECTAL CANCER METASTATIC
     Dosage: 209 MG Q3W
     Route: 042
     Dates: start: 20040614, end: 20040614
  2. (CAPECITABINE) - FORM: UNKNOWN - UNIT DOSE: UNKNOWN [Suspect]
  3. (BEVACIZUMAB) - SOLUTION - 7.5 MG/KG [Suspect]
     Dosage: 7.5 MG/KG
     Route: 042
     Dates: start: 20040614, end: 20040614

REACTIONS (3)
  - HEMIPARESIS [None]
  - HYPERTENSIVE CRISIS [None]
  - PLEURAL EFFUSION [None]
